FAERS Safety Report 21665700 (Version 2)
Quarter: 2022Q4

REPORT INFORMATION
  Report Type: Spontaneous
  Country: TR (occurrence: TR)
  Receive Date: 20221201
  Receipt Date: 20221213
  Transmission Date: 20230113
  Serious: Yes (Other)
  Sender: FDA-Public Use
  Company Number: TR-002147023-NVSC2022TR266110

PATIENT
  Age: 22 Year
  Sex: Male

DRUGS (1)
  1. TRILEPTAL [Suspect]
     Active Substance: OXCARBAZEPINE
     Indication: Epilepsy
     Dosage: 3.5 CC, IN MORNING AND IN THE EVENING 2 X 1 (FOR 15 YEARS)
     Route: 065

REACTIONS (3)
  - Seizure [Unknown]
  - Product supply issue [Recovered/Resolved]
  - Drug ineffective [Unknown]
